FAERS Safety Report 15247386 (Version 4)
Quarter: 2018Q4

REPORT INFORMATION
  Report Type: Spontaneous
  Country: NL (occurrence: NL)
  Receive Date: 20180807
  Receipt Date: 20181106
  Transmission Date: 20190204
  Serious: Yes (Other)
  Sender: FDA-Public Use
  Company Number: NL-UCBSA-2018034530

PATIENT
  Age: 37 Year
  Sex: Female

DRUGS (4)
  1. FLUTICASON [Concomitant]
     Active Substance: FLUTICASONE
     Indication: SEASONAL ALLERGY
     Dosage: UNK
     Dates: end: 20180606
  2. LORATADINE. [Concomitant]
     Active Substance: LORATADINE
     Indication: SEASONAL ALLERGY
     Dosage: UNK
     Dates: end: 20180606
  3. AZELASTINE. [Concomitant]
     Active Substance: AZELASTINE HYDROCHLORIDE
     Indication: SEASONAL ALLERGY
     Dosage: UNK
     Dates: end: 20180606
  4. LEVOCETIRIZINE HYDROCHLORIDE [Suspect]
     Active Substance: LEVOCETIRIZINE HYDROCHLORIDE
     Indication: SEASONAL ALLERGY
     Dosage: IN TOTAAL 2 TABLETTEN IN 1 WEEK

REACTIONS (4)
  - Abortion spontaneous [Unknown]
  - Abdominal pain [Unknown]
  - Exposure during pregnancy [Unknown]
  - Uterine haemorrhage [Unknown]

NARRATIVE: CASE EVENT DATE: 20180613
